FAERS Safety Report 4310696-0 (Version None)
Quarter: 2004Q1

REPORT INFORMATION
  Report Type: 
  Country: None (occurrence: None)
  Receive Date: 20040301
  Receipt Date: 20031216
  Transmission Date: 20041129
  Serious: No
  Sender: FDA-Public Use
  Company Number: WAES 0312USA01782

PATIENT
  Age: 64 Year
  Sex: Female
  Weight: 84.369 kg

DRUGS (1)
  1. ZETIA [Suspect]
     Indication: BLOOD CHOLESTEROL INCREASED
     Dosage: 10 MG/DAILY/PO
     Route: 048
     Dates: start: 20030814, end: 20030930

REACTIONS (5)
  - ADVERSE EVENT [None]
  - DIARRHOEA [None]
  - GASTRITIS [None]
  - NAUSEA [None]
  - PHARYNGITIS [None]
